FAERS Safety Report 7922670-3 (Version None)
Quarter: 2011Q4

REPORT INFORMATION
  Report Type: 
  Country: None (occurrence: None)
  Receive Date: 20111117
  Receipt Date: 20110120
  Transmission Date: 20120403
  Serious: No
  Sender: FDA-Public Use
  Company Number: US-ALLERGAN-1100915US

PATIENT
  Age: 73 Year
  Sex: Female

DRUGS (2)
  1. COMBIGAN [Suspect]
     Indication: GLAUCOMA
     Dosage: 2 GTT, BID
     Route: 047
     Dates: start: 20090101, end: 20110119
  2. LUBRIFRESH [Concomitant]
     Indication: DRY EYE

REACTIONS (3)
  - PRURITUS [None]
  - RASH [None]
  - PURULENT DISCHARGE [None]
